FAERS Safety Report 9147186 (Version 1)
Quarter: 2013Q1

REPORT INFORMATION
  Report Type: Spontaneous
  Country: JP (occurrence: JP)
  Receive Date: 20130307
  Receipt Date: 20130307
  Transmission Date: 20140127
  Serious: Yes (Other)
  Sender: FDA-Public Use
  Company Number: JP-WATSON-2013-03213

PATIENT
  Age: 73 Year
  Sex: Male

DRUGS (1)
  1. RAPAFLO (WATSON LABORATORIES) [Suspect]
     Indication: DYSURIA
     Dosage: 4 MG, UNK
     Route: 048
     Dates: start: 20120717, end: 20130213

REACTIONS (1)
  - Liver disorder [Recovered/Resolved]
